FAERS Safety Report 7203372-8 (Version None)
Quarter: 2010Q4

REPORT INFORMATION
  Report Type: 
  Country: None (occurrence: None)
  Receive Date: 20101230
  Receipt Date: 20101215
  Transmission Date: 20110411
  Serious: Yes (Hospitalization, Other)
  Sender: FDA-Public Use
  Company Number: US-JNJFOC-20101000024

PATIENT
  Sex: Male

DRUGS (32)
  1. LEVAQUIN [Suspect]
     Indication: NASAL CONGESTION
     Route: 048
     Dates: start: 20100908, end: 20100913
  2. PREDNISONE [Suspect]
     Indication: PULMONARY CONGESTION
     Route: 048
  3. PREDNISONE [Suspect]
     Dosage: 10 TAPER OFF OVER 5 DAYS
     Route: 048
  4. PREDNISONE [Suspect]
     Route: 048
  5. PREDNISONE [Suspect]
     Indication: CHRONIC OBSTRUCTIVE PULMONARY DISEASE
     Dosage: 10 TAPER OFF OVER 5 DAYS
     Route: 048
  6. PREDNISONE [Suspect]
     Route: 048
  7. PREDNISONE [Suspect]
     Route: 048
  8. ALL OTHER THERAPEUTIC PRODUCT [Suspect]
     Indication: THROMBOSIS PROPHYLAXIS
     Route: 048
  9. ALL OTHER THERAPEUTIC PRODUCT [Suspect]
     Route: 048
  10. ALL OTHER THERAPEUTIC PRODUCT [Suspect]
     Route: 048
  11. COREG [Concomitant]
     Indication: HYPERTENSION
     Route: 048
  12. COREG [Concomitant]
     Indication: CARDIAC FAILURE CONGESTIVE
     Route: 048
  13. COREG [Concomitant]
     Indication: CARDIOMYOPATHY
     Route: 048
  14. INSULIN ASPART [Concomitant]
     Indication: DIABETES MELLITUS
     Dosage: BEFORE MEALS
     Route: 058
  15. LANTUS [Concomitant]
     Indication: DIABETES MELLITUS
     Route: 058
  16. LEVOXYL [Concomitant]
     Indication: HYPOTHYROIDISM
     Route: 048
  17. DIGOXIN [Concomitant]
     Indication: ATRIAL FIBRILLATION
     Route: 048
  18. TORSEMIDE [Concomitant]
     Indication: CARDIAC FAILURE CONGESTIVE
     Route: 048
  19. OMEPRAZOLE [Concomitant]
     Indication: GASTROOESOPHAGEAL REFLUX DISEASE
     Route: 048
  20. TRAZODONE [Concomitant]
     Indication: SLEEP APNOEA SYNDROME
     Dosage: AT BEDTIME
     Route: 048
  21. THEOPHYLLINE [Concomitant]
     Indication: CHRONIC OBSTRUCTIVE PULMONARY DISEASE
     Dosage: AT BEDTIME
     Route: 048
  22. MELATONIN [Concomitant]
     Indication: SLEEP APNOEA SYNDROME
     Dosage: AT BEDTIME
     Route: 048
  23. POTASSIUM CHLORIDE [Concomitant]
     Indication: MINERAL SUPPLEMENTATION
     Route: 048
  24. PULMICORT [Concomitant]
     Indication: CHRONIC OBSTRUCTIVE PULMONARY DISEASE
     Route: 048
  25. SIMVASTATIN [Concomitant]
     Indication: DYSLIPIDAEMIA
     Dosage: AT BEDTIME
     Route: 048
  26. ATIVAN [Concomitant]
     Indication: INSOMNIA
     Dosage: PRN
     Route: 048
  27. NORCO [Concomitant]
     Indication: PAIN MANAGEMENT
     Dosage: 5/325 MG PRN
     Route: 048
  28. OXYCODONE AND ACETAMINOPHEN [Concomitant]
     Indication: PAIN
     Dosage: 5/500 MG PRN
     Route: 048
  29. ALLOPURINOL [Concomitant]
     Indication: GOUT
     Route: 048
  30. BENZONATATE [Concomitant]
     Indication: COUGH
     Route: 048
  31. DIFLUCAN [Concomitant]
     Indication: PNEUMONIA
     Route: 048
  32. FLAGYL [Concomitant]
     Indication: PNEUMONIA
     Route: 048

REACTIONS (4)
  - AUTOIMMUNE DISORDER [None]
  - INTERNATIONAL NORMALISED RATIO INCREASED [None]
  - INTERSTITIAL LUNG DISEASE [None]
  - RESPIRATORY FAILURE [None]
